FAERS Safety Report 21673678 (Version 1)
Quarter: 2022Q4

REPORT INFORMATION
  Report Type: Other
  Country: CN (occurrence: CN)
  Receive Date: 20221202
  Receipt Date: 20221202
  Transmission Date: 20230112
  Serious: Yes (Other)
  Sender: FDA-Public Use
  Company Number: CN-GE HEALTHCARE-2022CSU008627

PATIENT
  Age: 72 Year
  Sex: Male
  Weight: 77 kg

DRUGS (3)
  1. VISIPAQUE [Suspect]
     Active Substance: IODIXANOL
     Indication: Angiogram cerebral
     Dosage: 100 ML, SINGLE
     Route: 042
     Dates: start: 20221107, end: 20221107
  2. VISIPAQUE [Suspect]
     Active Substance: IODIXANOL
     Indication: Transient ischaemic attack
  3. VISIPAQUE [Suspect]
     Active Substance: IODIXANOL
     Indication: Parkinson^s disease

REACTIONS (1)
  - Delirium [Recovering/Resolving]

NARRATIVE: CASE EVENT DATE: 20221107
